FAERS Safety Report 5265930-X (Version None)
Quarter: 2007Q1

REPORT INFORMATION
  Report Type: 
  Country: None (occurrence: None)
  Receive Date: 20070315
  Receipt Date: 20070308
  Transmission Date: 20070707
  Serious: Yes (Life-Threatening)
  Sender: FDA-Public Use
  Company Number: HQWYE147208MAR07

PATIENT
  Age: 52 Year
  Sex: Female

DRUGS (9)
  1. AMIODAR [Suspect]
     Indication: SUPRAVENTRICULAR TACHYCARDIA
     Dosage: 600 MG IN 500 ML, UNKNOWN RATE OF INFUSION
     Route: 042
     Dates: start: 20070218, end: 20070218
  2. LASIX [Concomitant]
     Indication: URINE OUTPUT DECREASED
     Route: 048
     Dates: start: 20061204
  3. KANRENOL [Concomitant]
     Indication: SECONDARY ALDOSTERONISM
     Route: 048
     Dates: start: 20061204
  4. ZANTAC [Concomitant]
     Indication: GASTRITIS
     Route: 048
     Dates: start: 20061204
  5. BISOPROLOL FUMARATE [Concomitant]
     Indication: CARDIAC FAILURE
     Route: 048
     Dates: start: 20070122
  6. FERRO-GRAD [Concomitant]
     Indication: ANAEMIA
     Route: 048
     Dates: start: 20070214
  7. COUMADIN [Concomitant]
     Indication: THROMBOSIS PROPHYLAXIS
     Route: 048
     Dates: start: 20061204
  8. GLUCOSE [Suspect]
     Indication: SUPRAVENTRICULAR TACHYCARDIA
     Dosage: 500 ML - UNKNOWN RATE OF INFUSION
     Route: 042
     Dates: start: 20070218, end: 20070218
  9. EUTIROX [Concomitant]
     Indication: HYPOTHYROIDISM
     Route: 048
     Dates: start: 20061204

REACTIONS (2)
  - LARYNGOSPASM [None]
  - RESPIRATORY ARREST [None]
